FAERS Safety Report 4912976-4 (Version None)
Quarter: 2006Q1

REPORT INFORMATION
  Report Type: 
  Country: None (occurrence: None)
  Receive Date: 20060210
  Receipt Date: 20060131
  Transmission Date: 20060701
  Serious: Yes (Hospitalization, Other)
  Sender: FDA-Public Use
  Company Number: 2006016573

PATIENT
  Age: 8 Year
  Sex: Male
  Weight: 24.9478 kg

DRUGS (6)
  1. ZITHROMAX [Suspect]
     Indication: PHARYNGITIS STREPTOCOCCAL
     Dosage: 100 MG (100 MG, 1 IN 1 D),
     Dates: start: 20051229
  2. OMNICEF [Concomitant]
  3. AMOXICILLIN [Concomitant]
  4. PREVACID [Concomitant]
  5. MULTIVITAMIN [Concomitant]
  6. HERBAL PREPARATION (HERBAL PREPARATION) [Concomitant]

REACTIONS (3)
  - DELIRIUM [None]
  - PNEUMONIA [None]
  - PROCEDURAL PAIN [None]
